FAERS Safety Report 12160209 (Version 1)
Quarter: 2016Q1

REPORT INFORMATION
  Report Type: Spontaneous
  Country: US (occurrence: US)
  Receive Date: 20160308
  Receipt Date: 20160308
  Transmission Date: 20160526
  Serious: No
  Sender: FDA-Public Use
  Company Number: US-SMITH AND NEPHEW, INC-2015SMT00472

PATIENT
  Age: 65 Year
  Sex: Female
  Weight: 54.42 kg

DRUGS (2)
  1. COLLAGENASE SANTYL [Suspect]
     Active Substance: COLLAGENASE CLOSTRIDIUM HISTOLYTICUM
     Indication: WOUND
     Dosage: UNK UNK, ONCE
     Dates: start: 20151015, end: 20151015
  2. NUTRITIONAL SUPPLEMENTS (NON-SPECIFIC) [Concomitant]
     Dosage: UNK, 1X/DAY

REACTIONS (2)
  - Wound complication [Unknown]
  - Application site haemorrhage [Unknown]

NARRATIVE: CASE EVENT DATE: 201510
